FAERS Safety Report 14309127 (Version 1)
Quarter: 2017Q4

REPORT INFORMATION
  Report Type: Spontaneous
  Country: ES (occurrence: ES)
  Receive Date: 20171220
  Receipt Date: 20171220
  Transmission Date: 20180321
  Serious: Yes (Death, Other)
  Sender: FDA-Public Use
  Company Number: ES-PFIZER INC-2017538905

PATIENT
  Age: 86 Year
  Sex: Male

DRUGS (5)
  1. DIGOXINE [Concomitant]
     Active Substance: DIGOXIN
     Dosage: UNK
  2. THEOPHYLLINE MONOHYDRATE [Interacting]
     Active Substance: THEOPHYLLINE
     Dosage: 150 MG, 2X/DAY
     Route: 048
  3. AMIODARONE HCL [Suspect]
     Active Substance: AMIODARONE HYDROCHLORIDE
     Dosage: 600 MG, DAILY
     Route: 065
  4. DOMPERIDONE [Concomitant]
     Active Substance: DOMPERIDONE
     Dosage: UNK
  5. FUROSEMIDE. [Concomitant]
     Active Substance: FUROSEMIDE
     Dosage: UNK

REACTIONS (16)
  - Nervousness [Recovered/Resolved]
  - Tremor [Recovered/Resolved]
  - Tachycardia [Recovered/Resolved]
  - Respiratory rate increased [None]
  - Cardio-respiratory arrest [Fatal]
  - Blood albumin decreased [None]
  - Drug interaction [Unknown]
  - Nausea [Recovering/Resolving]
  - Blood bilirubin increased [None]
  - Alanine aminotransferase increased [None]
  - Blood creatinine increased [None]
  - Blood alkaline phosphatase increased [None]
  - Drug level above therapeutic [Recovered/Resolved]
  - Toxicity to various agents [Recovered/Resolved]
  - Cardiac failure congestive [Unknown]
  - Aspartate aminotransferase increased [None]
